FAERS Safety Report 21571561 (Version 1)
Quarter: 2022Q4

REPORT INFORMATION
  Report Type: Spontaneous
  Country: PT (occurrence: PT)
  Receive Date: 20221109
  Receipt Date: 20221109
  Transmission Date: 20230112
  Serious: Yes (Other)
  Sender: FDA-Public Use
  Company Number: PT-VIIV HEALTHCARE LIMITED-PT2022EME158868

PATIENT

DRUGS (1)
  1. DOVATO [Suspect]
     Active Substance: DOLUTEGRAVIR SODIUM\LAMIVUDINE
     Indication: Antiretroviral therapy
     Dosage: UNK

REACTIONS (3)
  - Portal vein thrombosis [Unknown]
  - Hepatitis B [Unknown]
  - Hepatitis D [Unknown]
